FAERS Safety Report 5233665-5 (Version None)
Quarter: 2007Q1

REPORT INFORMATION
  Report Type: 
  Country: None (occurrence: None)
  Receive Date: 20070208
  Receipt Date: 20070122
  Transmission Date: 20070707
  Serious: Yes (Other)
  Sender: FDA-Public Use
  Company Number: US-NOVOPROD-244935

PATIENT
  Sex: Female
  Weight: 69.388 kg

DRUGS (9)
  1. ACTIVELLA [Suspect]
     Indication: MENOPAUSAL SYMPTOMS
     Dosage: UNK TAB, UNK
     Route: 048
     Dates: start: 20011201, end: 20020501
  2. PREMARIN [Suspect]
     Indication: MENOPAUSAL SYMPTOMS
     Dosage: .625 MG, UNK
     Dates: start: 19950101, end: 20010101
  3. CYCRIN [Suspect]
     Indication: MENOPAUSAL SYMPTOMS
     Dosage: 5 MG AND 2.5 MG
     Dates: start: 19960101, end: 19990101
  4. CLIMARA [Suspect]
     Indication: MENOPAUSAL SYMPTOMS
     Dosage: .025 MG, UNK
     Route: 062
     Dates: start: 20010601, end: 20011001
  5. PROMETRIUM [Suspect]
     Indication: MENOPAUSAL SYMPTOMS
     Dosage: 100 MG, UNK
     Dates: start: 20010601, end: 20010901
  6. MEDROXYPROGESTERONE ACETATE [Suspect]
     Indication: MENOPAUSAL SYMPTOMS
     Dosage: 5 MG, UNK
     Dates: start: 20000115, end: 20010801
  7. AMBIEN [Concomitant]
     Indication: SLEEP DISORDER THERAPY
     Dates: start: 20020101
  8. CLONAZEPAM [Concomitant]
     Indication: ANXIETY
     Dates: start: 19930101
  9. WELLBUTRIN [Concomitant]
     Indication: DEPRESSION
     Dates: start: 20000101, end: 20010101

REACTIONS (2)
  - OVARIAN CANCER [None]
  - PHARMACEUTICAL PRODUCT COMPLAINT [None]
